FAERS Safety Report 6664635-8 (Version None)
Quarter: 2010Q2

REPORT INFORMATION
  Report Type: 
  Country: None (occurrence: None)
  Receive Date: 20100401
  Receipt Date: 20100316
  Transmission Date: 20101027
  Serious: Yes (Hospitalization, Other)
  Sender: FDA-Public Use
  Company Number: PHHY2010IT09189

PATIENT
  Sex: Female
  Weight: 98 kg

DRUGS (8)
  1. ALISKIREN ALI+ [Suspect]
     Indication: HYPERTENSION
     Dosage: 150 MG DAILY
     Route: 048
     Dates: start: 20090901, end: 20100125
  2. KARVEZIDE [Concomitant]
     Indication: HYPERTENSION
     Dosage: UNK
     Dates: start: 20050101
  3. NEBILOX [Concomitant]
     Indication: HYPERTENSION
     Dosage: UNK
     Dates: start: 20050101
  4. TRIATEC [Concomitant]
     Indication: HYPERTENSION
     Dosage: 2.5 MG, UNK
     Route: 048
     Dates: start: 20050101
  5. LASIX [Concomitant]
     Indication: HYPERTENSION
     Dosage: 25 MG, UNK
     Route: 048
     Dates: start: 20050101
  6. DILATREND [Concomitant]
     Dosage: 1 TABLET AT 7.00 A.M. AND 1/2  TABLET AT 6.00 P.M
     Route: 048
  7. ASPIRIN [Concomitant]
     Dosage: 100 MG, 1 TABLET AFTER LUNCH
     Route: 048
  8. ALLOPURINOL [Concomitant]
     Dosage: 0.5 DF, UNK
     Route: 048

REACTIONS (7)
  - BLOOD ALBUMIN DECREASED [None]
  - BLOOD UREA INCREASED [None]
  - GENERALISED OEDEMA [None]
  - HIGH DENSITY LIPOPROTEIN DECREASED [None]
  - OLIGURIA [None]
  - PROTEIN TOTAL DECREASED [None]
  - RENAL FAILURE CHRONIC [None]
